FAERS Safety Report 5424544-9 (Version None)
Quarter: 2007Q4

REPORT INFORMATION
  Report Type: 
  Country: None (occurrence: None)
  Receive Date: 20070822
  Receipt Date: 20070817
  Transmission Date: 20080405
  Serious: Yes (Death, Hospitalization)
  Sender: FDA-Public Use
  Company Number: 009-C5013-07080303

PATIENT
  Age: 84 Year
  Sex: Male
  Weight: 65 kg

DRUGS (25)
  1. CC-5013/PLACEBO (LENALIDOMIDE) (CAPSULES) [Suspect]
     Indication: MULTIPLE MYELOMA
     Dosage: 10 MG, DAILY, ORAL
     Route: 048
     Dates: start: 20070727, end: 20070731
  2. MELPHALAN (MELPHALAN) [Suspect]
     Indication: MULTIPLE MYELOMA
     Dosage: 12 MG, DAILY, ORAL
     Route: 048
     Dates: start: 20070727, end: 20070731
  3. SEKOLEN (METOPROLOL TARTRATE) [Concomitant]
  4. AMLODIPINE [Concomitant]
  5. SPASMOLYT (TROSPIUM) [Concomitant]
  6. PREDNISONE TAB [Concomitant]
  7. PREDNISONE TAB [Suspect]
     Indication: MULTIPLE MYELOMA
     Dosage: 130 MG, DAILY, ORAL
     Route: 048
     Dates: start: 20070727, end: 20070731
  8. GUTALAX (SODIUM PICOSULFATE) (DROPS) [Concomitant]
  9. NYSTATIN [Concomitant]
  10. PANTOLOC (PANTROPRAZOLE) [Concomitant]
  11. MOVICOL (NULYTELY) [Concomitant]
  12. ACETYLSALICYLIC ACID SRT [Concomitant]
  13. NOVALGIN (METAMIZOLE SODIUM) [Concomitant]
  14. MELAXEN (PARACETAMOL) [Concomitant]
  15. HYDAL (HYDROMORPHONE HYDROCHLORIDE) [Concomitant]
  16. NEURONTIN [Concomitant]
  17. KONAKION [Concomitant]
  18. FRAXIPARIN (HEPARIN-FRACTION, CALCIUM SALT) [Concomitant]
  19. ERYPO (EPOETIN ALFA) [Concomitant]
  20. DOPAMINE HYDROCHLORIDE [Concomitant]
  21. VENDAL (MORPHINE HYDROCHLORIDE) [Concomitant]
  22. LASIX [Concomitant]
  23. TAZONAM (PIP/TAZO) [Concomitant]
  24. KONAKION [Concomitant]
  25. NACL (SODIUM CHLORIDE) [Concomitant]

REACTIONS (7)
  - CIRCULATORY COLLAPSE [None]
  - GENERAL PHYSICAL HEALTH DETERIORATION [None]
  - HAEMORRHAGE [None]
  - MUSCLE HAEMORRHAGE [None]
  - PANCYTOPENIA [None]
  - PLEURAL EFFUSION [None]
  - RENAL FAILURE ACUTE [None]
